FAERS Safety Report 7765457-7 (Version None)
Quarter: 2011Q3

REPORT INFORMATION
  Report Type: 
  Country: None (occurrence: None)
  Receive Date: 20110921
  Receipt Date: 20110915
  Transmission Date: 20111222
  Serious: Yes (Hospitalization, Other)
  Sender: FDA-Public Use
  Company Number: US-PFIZER INC-2011115324

PATIENT
  Sex: Female

DRUGS (3)
  1. TRAZODONE [Concomitant]
     Indication: DEPRESSION
     Dosage: UNK
     Dates: end: 20070101
  2. LEXAPRO [Concomitant]
     Indication: DEPRESSION
     Dosage: UNK
     Dates: end: 20070101
  3. CHANTIX [Suspect]
     Indication: SMOKING CESSATION THERAPY
     Dosage: STARTING AND CONTINUING PACKS
     Dates: start: 20061106, end: 20070130

REACTIONS (9)
  - MAJOR DEPRESSION [None]
  - MENTAL STATUS CHANGES [None]
  - CATATONIA [None]
  - ATTENTION DEFICIT/HYPERACTIVITY DISORDER [None]
  - BIPOLAR DISORDER [None]
  - ANXIETY [None]
  - PANIC DISORDER [None]
  - SUICIDAL BEHAVIOUR [None]
  - POST-TRAUMATIC STRESS DISORDER [None]
